FAERS Safety Report 17270068 (Version 1)
Quarter: 2020Q1

REPORT INFORMATION
  Report Type: Spontaneous
  Country: US (occurrence: US)
  Receive Date: 20200114
  Receipt Date: 20200114
  Transmission Date: 20200409
  Serious: Yes (Hospitalization)
  Sender: FDA-Public Use
  Company Number: US-PARI RESPIRATORY EQUIPMENT, INC.-2019PAR00035

PATIENT
  Age: 15 Year
  Sex: Female

DRUGS (17)
  1. KITABIS PAK [Suspect]
     Active Substance: TOBRAMYCIN
     Indication: CYSTIC FIBROSIS
     Dosage: 300 MG, 2X/DAY
     Dates: start: 20190411
  2. METHOTREXATE. [Concomitant]
     Active Substance: METHOTREXATE
  3. HUMALOG [Concomitant]
     Active Substance: INSULIN LISPRO
  4. CAYSTON [Concomitant]
     Active Substance: AZTREONAM
  5. LANTUS [Concomitant]
     Active Substance: INSULIN GLARGINE
  6. RANITIDINE. [Concomitant]
     Active Substance: RANITIDINE
  7. ZENPEP [Concomitant]
     Active Substance: PANCRELIPASE AMYLASE\PANCRELIPASE LIPASE\PANCRELIPASE PROTEASE
  8. AMOXICILLIN. [Concomitant]
     Active Substance: AMOXICILLIN
  9. CETIRIZINE [Concomitant]
     Active Substance: CETIRIZINE HYDROCHLORIDE
  10. MELATONIN [Concomitant]
     Active Substance: MELATONIN
  11. URSODIOL. [Concomitant]
     Active Substance: URSODIOL
  12. PULMOZYME [Concomitant]
     Active Substance: DORNASE ALFA
  13. FOLIC ACID. [Concomitant]
     Active Substance: FOLIC ACID
  14. ORKAMBI [Suspect]
     Active Substance: IVACAFTOR\LUMACAFTOR
     Dosage: 2 TABLETS, 2X/DAY
     Route: 048
     Dates: start: 20170620
  15. PROVENTIL HFA [Concomitant]
     Active Substance: ALBUTEROL SULFATE
  16. DEKAS PLUS [Concomitant]
  17. HYPERSAL [Concomitant]
     Active Substance: SODIUM CHLORIDE

REACTIONS (1)
  - Dyspnoea [Unknown]

NARRATIVE: CASE EVENT DATE: 20190428
